FAERS Safety Report 6848384-9 (Version None)
Quarter: 2010Q3

REPORT INFORMATION
  Report Type: 
  Country: None (occurrence: None)
  Receive Date: 20100716
  Receipt Date: 20100706
  Transmission Date: 20110219
  Serious: Yes (Hospitalization)
  Sender: FDA-Public Use
  Company Number: US-ABBOTT-10P-163-0655261-00

PATIENT
  Sex: Male
  Weight: 118.04 kg

DRUGS (12)
  1. HUMIRA [Suspect]
     Indication: PSORIATIC ARTHROPATHY
     Dates: start: 20050101
  2. HUMIRA [Suspect]
     Indication: RHEUMATOID ARTHRITIS
  3. DICLOFENAC [Concomitant]
     Indication: PSORIATIC ARTHROPATHY
  4. DICLOFENAC [Concomitant]
     Indication: RHEUMATOID ARTHRITIS
  5. GLIMEPIRIDE [Concomitant]
     Indication: DIABETES MELLITUS
  6. PRAVASTATIN [Concomitant]
     Indication: BLOOD CHOLESTEROL INCREASED
  7. METHOTREXATE [Concomitant]
     Indication: PRODUCT USED FOR UNKNOWN INDICATION
  8. FOLIC ACID [Concomitant]
     Indication: VITAMIN SUPPLEMENTATION
  9. PRILOSEC [Concomitant]
     Indication: HIATUS HERNIA
  10. METOPROLOL TARTRATE [Concomitant]
     Indication: HYPERTENSION
  11. WARFARIN SODIUM [Concomitant]
     Indication: ATRIAL FIBRILLATION
  12. MULTAQ [Concomitant]
     Indication: ATRIAL FIBRILLATION

REACTIONS (3)
  - ARTERIOSCLEROSIS CORONARY ARTERY [None]
  - CHEST PAIN [None]
  - PROCEDURAL PAIN [None]
